FAERS Safety Report 23958734 (Version 1)
Quarter: 2024Q2

REPORT INFORMATION
  Report Type: Spontaneous
  Country: GB (occurrence: None)
  Receive Date: 20240610
  Receipt Date: 20240610
  Transmission Date: 20240715
  Serious: Yes (Hospitalization, Other)
  Sender: FDA-Public Use
  Company Number: GB-Unichem Pharmaceuticals (USA) Inc-UCM202406-000686

PATIENT
  Sex: Male
  Weight: 60 kg

DRUGS (1)
  1. DIVALPROEX SODIUM [Suspect]
     Active Substance: DIVALPROEX SODIUM
     Indication: Product used for unknown indication
     Dosage: 65 TABLETS

REACTIONS (18)
  - Metabolic acidosis [Recovered/Resolved]
  - Hypoxia [Recovered/Resolved]
  - Hyperlactacidaemia [Recovered/Resolved]
  - Agitation [Recovered/Resolved]
  - Depressed level of consciousness [Recovered/Resolved]
  - Brain oedema [Recovered/Resolved]
  - Acute respiratory distress syndrome [Recovered/Resolved]
  - Pneumonia aspiration [Recovered/Resolved]
  - Pleural effusion [Recovered/Resolved]
  - Muscle rigidity [Recovered/Resolved]
  - Musculoskeletal stiffness [Recovered/Resolved]
  - Condition aggravated [Recovered/Resolved]
  - Hypotension [Recovered/Resolved]
  - Tachycardia [Recovered/Resolved]
  - Urinary incontinence [Recovered/Resolved]
  - Anal incontinence [Recovered/Resolved]
  - Toxicity to various agents [Unknown]
  - Intentional overdose [Unknown]
